FAERS Safety Report 13620288 (Version 1)
Quarter: 2017Q2

REPORT INFORMATION
  Report Type: Spontaneous
  Country: US (occurrence: US)
  Receive Date: 20170607
  Receipt Date: 20170607
  Transmission Date: 20170830
  Serious: Yes (Hospitalization)
  Sender: FDA-Public Use
  Company Number: None

PATIENT
  Age: 88 Year
  Sex: Male
  Weight: 81.6 kg

DRUGS (1)
  1. ERTAPENEM [Suspect]
     Active Substance: ERTAPENEM
     Indication: OSTEOMYELITIS
     Route: 042
     Dates: start: 20170322, end: 20170405

REACTIONS (5)
  - Mental status changes [None]
  - Agitation [None]
  - Seizure [None]
  - Delirium [None]
  - Myoclonus [None]

NARRATIVE: CASE EVENT DATE: 20170405
